FAERS Safety Report 25129983 (Version 3)
Quarter: 2025Q2

REPORT INFORMATION
  Report Type: Report from Study
  Country: CA (occurrence: CA)
  Receive Date: 20250327
  Receipt Date: 20250415
  Transmission Date: 20250716
  Serious: Yes (Other)
  Sender: JOHNSON AND JOHNSON
  Company Number: CA-JNJFOC-20250352702

PATIENT
  Age: 12 Year
  Sex: Male
  Weight: 39 kg

DRUGS (4)
  1. REMICADE [Suspect]
     Active Substance: INFLIXIMAB
     Indication: Crohn^s disease
     Route: 041
  2. REMICADE [Suspect]
     Active Substance: INFLIXIMAB
     Route: 041
  3. REMICADE [Suspect]
     Active Substance: INFLIXIMAB
     Route: 041
  4. REMICADE [Suspect]
     Active Substance: INFLIXIMAB
     Route: 041
     Dates: start: 20230202

REACTIONS (10)
  - Tremor [Recovered/Resolved]
  - Dizziness [Recovered/Resolved]
  - Infusion related reaction [Recovered/Resolved]
  - Fatigue [Recovered/Resolved]
  - Asthenia [Recovered/Resolved]
  - Feeling hot [Unknown]
  - Pallor [Unknown]
  - Nausea [Recovered/Resolved]
  - Pharyngitis streptococcal [Unknown]
  - Sinusitis [Unknown]

NARRATIVE: CASE EVENT DATE: 20250318
